FAERS Safety Report 21046919 (Version 1)
Quarter: 2022Q3

REPORT INFORMATION
  Report Type: Spontaneous
  Country: US (occurrence: US)
  Receive Date: 20220706
  Receipt Date: 20220706
  Transmission Date: 20221027
  Serious: Yes (Death, Other)
  Sender: FDA-Public Use
  Company Number: US-BRISTOL-MYERS SQUIBB COMPANY-2022-066860

PATIENT
  Age: 56 Year
  Sex: Female

DRUGS (2)
  1. OPDIVO [Suspect]
     Active Substance: NIVOLUMAB
     Indication: Cervix carcinoma
     Dosage: DOSE : 240MG|69MG;     FREQ : EVERY 2 WEEKS|EVERY 6 WEEKS
     Route: 065
     Dates: start: 20220511
  2. YERVOY [Suspect]
     Active Substance: IPILIMUMAB
     Indication: Cervix carcinoma
     Dosage: DOSE : 240MG|69MG;     FREQ : EVERY 2 WEEKS|EVERY 6 WEEKS
     Route: 065

REACTIONS (2)
  - Cervix carcinoma [Fatal]
  - Intentional product use issue [Unknown]

NARRATIVE: CASE EVENT DATE: 20220628
